FAERS Safety Report 7647796-3 (Version None)
Quarter: 2011Q3

REPORT INFORMATION
  Report Type: 
  Country: None (occurrence: None)
  Receive Date: 20110801
  Receipt Date: 20110722
  Transmission Date: 20111222
  Serious: Yes (Hospitalization, Other)
  Sender: FDA-Public Use
  Company Number: DE-BRISTOL-MYERS SQUIBB COMPANY-15922024

PATIENT
  Age: 69 Year
  Sex: Male

DRUGS (1)
  1. ONGLYZA [Suspect]
     Indication: TYPE 2 DIABETES MELLITUS

REACTIONS (1)
  - PANCREATIC CARCINOMA [None]
